FAERS Safety Report 21200863 (Version 5)
Quarter: 2022Q4

REPORT INFORMATION
  Report Type: Spontaneous
  Country: US (occurrence: US)
  Receive Date: 20220811
  Receipt Date: 20221227
  Transmission Date: 20230113
  Serious: Yes (Hospitalization, Other)
  Sender: FDA-Public Use
  Company Number: US-AURINIA PHARMACEUTICALS INC.-AUR-002100

PATIENT
  Sex: Male

DRUGS (4)
  1. LUPKYNIS [Suspect]
     Active Substance: VOCLOSPORIN
     Indication: Lupus nephritis
     Dosage: 15.8 MILLIGRAM, BID
     Route: 048
     Dates: start: 20220712, end: 20220731
  2. LUPKYNIS [Suspect]
     Active Substance: VOCLOSPORIN
     Dosage: 7.9 MILLIGRAM, BID
     Route: 048
     Dates: start: 20220801, end: 20220831
  3. LUPKYNIS [Suspect]
     Active Substance: VOCLOSPORIN
     Dosage: 15.8 MILLIGRAM, BID
     Route: 048
     Dates: start: 20220901, end: 202211
  4. LUPKYNIS [Suspect]
     Active Substance: VOCLOSPORIN
     Dosage: 15.8 MILLIGRAM, BID
     Route: 048
     Dates: start: 20220712, end: 202211

REACTIONS (14)
  - Haemoglobin decreased [Not Recovered/Not Resolved]
  - Myocardial injury [Unknown]
  - Myocardial infarction [Unknown]
  - Blood pressure increased [Unknown]
  - Ageusia [Unknown]
  - Visual impairment [Unknown]
  - Anosmia [Unknown]
  - Vomiting [Unknown]
  - Pain [Not Recovered/Not Resolved]
  - Heart rate irregular [Unknown]
  - Muscular weakness [Unknown]
  - Influenza [Unknown]
  - Alopecia [Unknown]
  - Tremor [Unknown]
